FAERS Safety Report 6749305-X (Version None)
Quarter: 2010Q2

REPORT INFORMATION
  Report Type: 
  Country: None (occurrence: None)
  Receive Date: 20100601
  Receipt Date: 20100520
  Transmission Date: 20101027
  Serious: Yes (Other)
  Sender: FDA-Public Use
  Company Number: PT-AMGEN-QUU414232

PATIENT
  Sex: Male
  Weight: 77 kg

DRUGS (3)
  1. ENBREL [Suspect]
     Indication: ANKYLOSING SPONDYLITIS
     Route: 058
     Dates: start: 20100424
  2. INDOCID RETARD [Concomitant]
     Dosage: 75 MG EVERY
     Route: 048
  3. XANAX [Concomitant]
     Route: 048

REACTIONS (1)
  - ARRHYTHMIA SUPRAVENTRICULAR [None]
